FAERS Safety Report 9133606 (Version 2)
Quarter: 2013Q2

REPORT INFORMATION
  Report Type: Spontaneous
  Country: US (occurrence: US)
  Receive Date: 20130125
  Receipt Date: 20130510
  Transmission Date: 20140414
  Serious: No
  Sender: FDA-Public Use
  Company Number: US-ASTRAZENECA-2013SE04822

PATIENT
  Age: 64 Year
  Sex: Male

DRUGS (5)
  1. CAPRELSA [Suspect]
     Indication: MEDULLARY THYROID CANCER
     Route: 048
  2. CAPRELSA [Suspect]
     Indication: MEDULLARY THYROID CANCER
     Route: 048
  3. ALLOPURINOL [Concomitant]
  4. DICLOFENAC SODIUM [Concomitant]
  5. IMODIUM [Concomitant]

REACTIONS (3)
  - Gout [Unknown]
  - Rash [Unknown]
  - Blood pressure increased [Unknown]
